FAERS Safety Report 7674342-0 (Version None)
Quarter: 2011Q3

REPORT INFORMATION
  Report Type: 
  Country: None (occurrence: None)
  Receive Date: 20110810
  Receipt Date: 20110806
  Transmission Date: 20111222
  Serious: Yes (Death, Life-Threatening, Hospitalization)
  Sender: FDA-Public Use
  Company Number: JP-ASTRAZENECA-2011SE46246

PATIENT
  Age: 29908 Day
  Sex: Male

DRUGS (16)
  1. ASPIRIN [Suspect]
     Indication: ACUTE CORONARY SYNDROME
     Route: 048
     Dates: start: 20110728, end: 20110728
  2. AMPICILLIN SODIUM/SULBACTAM SODIUM [Concomitant]
     Indication: INFECTION
     Route: 051
     Dates: start: 20110801, end: 20110801
  3. BROTIZOLAM [Concomitant]
     Indication: SLEEP DISORDER
     Route: 048
     Dates: start: 20110730, end: 20110731
  4. XYLOCAINE [Concomitant]
     Indication: LOCAL ANAESTHESIA
     Route: 051
     Dates: start: 20110728, end: 20110728
  5. OYPALOMIN [Concomitant]
     Indication: ANGIOGRAM
     Route: 051
  6. HEPARIN SODIUM [Suspect]
     Indication: THROMBOSIS PROPHYLAXIS
     Route: 051
     Dates: start: 20110728, end: 20110728
  7. AMIODARONE HCL [Concomitant]
     Route: 048
     Dates: start: 20110731, end: 20110801
  8. PLACEBO [Suspect]
     Indication: ACUTE CORONARY SYNDROME
     Dosage: LOADING DOSE
     Route: 048
     Dates: start: 20110728, end: 20110728
  9. CRESTOR [Concomitant]
     Indication: HYPERLIPIDAEMIA
     Route: 048
     Dates: start: 20110729, end: 20110801
  10. SUNRYTHM [Concomitant]
     Indication: ARRHYTHMIA
     Route: 051
     Dates: start: 20110729, end: 20110729
  11. METOPROLOL TARTRATE [Concomitant]
     Indication: ACUTE CORONARY SYNDROME
     Route: 048
     Dates: start: 20110729, end: 20110731
  12. MILLISTROL [Concomitant]
     Indication: ARTERIOSPASM CORONARY
     Route: 022
     Dates: start: 20110728, end: 20110728
  13. CLOPIDOGREL [Suspect]
     Indication: ACUTE CORONARY SYNDROME
     Route: 048
     Dates: start: 20110728, end: 20110801
  14. AMIODARONE HCL [Concomitant]
     Indication: ARRHYTHMIA
     Route: 051
     Dates: start: 20110729, end: 20110731
  15. FUROSEMIDE [Concomitant]
     Indication: CARDIAC FAILURE
     Route: 051
     Dates: start: 20110729, end: 20110730
  16. PLACEBO [Suspect]
     Dosage: MAINTENANCE DOSE
     Route: 048
     Dates: start: 20110729, end: 20110801

REACTIONS (1)
  - CEREBRAL INFARCTION [None]
